FAERS Safety Report 6874662-3 (Version None)
Quarter: 2010Q3

REPORT INFORMATION
  Report Type: 
  Country: None (occurrence: None)
  Receive Date: 20100722
  Receipt Date: 20100716
  Transmission Date: 20110219
  Serious: Yes (Death, Hospitalization)
  Sender: FDA-Public Use
  Company Number: 2010US002783

PATIENT
  Age: 38 Year
  Sex: Male
  Weight: 55 kg

DRUGS (3)
  1. PROGRAF [Suspect]
     Indication: BONE MARROW TRANSPLANT
     Dates: start: 20090417, end: 20100117
  2. SOLUTIONS FOR PARENTERAL NUTRITION [Concomitant]
  3. CIDOFOVIR (CIDOFOVIR) [Concomitant]

REACTIONS (7)
  - CYTOMEGALOVIRUS INFECTION [None]
  - FLUID OVERLOAD [None]
  - GASTROINTESTINAL HAEMORRHAGE [None]
  - HAEMATOCRIT DECREASED [None]
  - HAEMOGLOBIN DECREASED [None]
  - PLATELET COUNT DECREASED [None]
  - RENAL FAILURE [None]
